FAERS Safety Report 7766784-X (Version None)
Quarter: 2011Q3

REPORT INFORMATION
  Report Type: 
  Country: None (occurrence: None)
  Receive Date: 20110922
  Receipt Date: 20101229
  Transmission Date: 20111222
  Serious: No
  Sender: FDA-Public Use
  Company Number: US-ASTRAZENECA-2010SE61255

PATIENT
  Age: 48 Year
  Sex: Female

DRUGS (8)
  1. SEROQUEL [Suspect]
     Route: 048
     Dates: start: 20101224
  2. XANAX [Concomitant]
     Indication: NERVOUSNESS
  3. TRAZODONE HCL [Concomitant]
  4. CADUET [Concomitant]
  5. HYDROCHLOROTHIAZIDE [Concomitant]
  6. SEROQUEL [Suspect]
     Indication: SLEEP DISORDER
     Route: 048
     Dates: start: 20050101, end: 20101223
  7. CYMBALTA [Concomitant]
  8. M.V.I. [Concomitant]

REACTIONS (4)
  - SLUGGISHNESS [None]
  - SOMNOLENCE [None]
  - DRUG DOSE OMISSION [None]
  - SEDATION [None]
